FAERS Safety Report 11620929 (Version 1)
Quarter: 2015Q4

REPORT INFORMATION
  Report Type: Spontaneous
  Country: NZ (occurrence: NZ)
  Receive Date: 20151012
  Receipt Date: 20151012
  Transmission Date: 20160304
  Serious: Yes (Other)
  Sender: FDA-Public Use
  Company Number: NZ-BAXTER-2015BAX054876

PATIENT
  Age: 58 Year
  Sex: Male

DRUGS (2)
  1. WATER FOR INJECTION, 100%, SOLUTION FOR INFUSION (BOTTLE) [Suspect]
     Active Substance: WATER
     Indication: PRODUCT USED FOR UNKNOWN INDICATION
     Route: 065
  2. MITOMYCIN C [Suspect]
     Active Substance: MITOMYCIN
     Indication: PRODUCT USED FOR UNKNOWN INDICATION
     Route: 065

REACTIONS (2)
  - Conjunctival filtering bleb leak [Unknown]
  - Scleral disorder [Unknown]

NARRATIVE: CASE EVENT DATE: 20150824
